FAERS Safety Report 13515659 (Version 1)
Quarter: 2017Q2

REPORT INFORMATION
  Report Type: Spontaneous
  Country: US (occurrence: US)
  Receive Date: 20170504
  Receipt Date: 20170504
  Transmission Date: 20170830
  Serious: Yes (Other)
  Sender: FDA-Public Use
  Company Number: US-JUBILANT HOLLISTERSTIER LLC-2020232

PATIENT
  Age: 43 Year
  Sex: Male
  Weight: 150.6 kg

DRUGS (2)
  1. ANIMAL ALLERGENS, AP DOG HAIR AND DANDER CANIS SPP [Suspect]
     Active Substance: CANIS LUPUS FAMILIARIS DANDER\CANIS LUPUS FAMILIARIS HAIR
     Route: 058
  2. ANIMAL ALLERGENS, AP DOG HAIR AND DANDER CANIS SPP [Suspect]
     Active Substance: CANIS LUPUS FAMILIARIS DANDER\CANIS LUPUS FAMILIARIS HAIR
     Indication: ALLERGY TEST
     Route: 058

REACTIONS (4)
  - Chest discomfort [Recovered/Resolved]
  - Wheezing [Recovered/Resolved]
  - Hypohidrosis [Recovered/Resolved]
  - Flushing [Recovered/Resolved]

NARRATIVE: CASE EVENT DATE: 20170328
